FAERS Safety Report 5862720-1 (Version None)
Quarter: 2008Q3

REPORT INFORMATION
  Report Type: 
  Country: None (occurrence: None)
  Receive Date: 20080828
  Receipt Date: 20080819
  Transmission Date: 20090109
  Serious: Yes (Other)
  Sender: FDA-Public Use
  Company Number: US-JNJFOC-20080804777

PATIENT
  Sex: Male
  Weight: 97.52 kg

DRUGS (1)
  1. RISPERDAL [Suspect]
     Indication: SCHIZOPHRENIA
     Route: 048

REACTIONS (7)
  - ASTHENIA [None]
  - HEADACHE [None]
  - HEART RATE IRREGULAR [None]
  - MUSCLE SPASTICITY [None]
  - MYOCARDIAL INFARCTION [None]
  - TREMOR [None]
  - WEIGHT INCREASED [None]
